FAERS Safety Report 14539452 (Version 1)
Quarter: 2018Q1

REPORT INFORMATION
  Report Type: Spontaneous
  Country: US (occurrence: US)
  Receive Date: 20180215
  Receipt Date: 20180215
  Transmission Date: 20180509
  Serious: Yes (Hospitalization)
  Sender: FDA-Public Use
  Company Number: None

PATIENT
  Age: 60 Year
  Sex: Male

DRUGS (8)
  1. ZOFRAN [Concomitant]
     Active Substance: ONDANSETRON HYDROCHLORIDE
  2. TEMOZOLOMIDE. [Suspect]
     Active Substance: TEMOZOLOMIDE
     Indication: BRAIN NEOPLASM MALIGNANT
     Route: 048
     Dates: start: 20170601
  3. PANTOPRAZOLE [Concomitant]
     Active Substance: PANTOPRAZOLE
  4. LEVETIRACETA [Concomitant]
  5. SODIUM [Concomitant]
     Active Substance: SODIUM
  6. GABAPENTIN. [Concomitant]
     Active Substance: GABAPENTIN
  7. MULTIVITAMIN [Concomitant]
     Active Substance: VITAMINS
  8. DEXAMETHASON [Concomitant]
     Active Substance: DEXAMETHASONE

REACTIONS (1)
  - Cerebral haemorrhage [None]

NARRATIVE: CASE EVENT DATE: 20180129
